FAERS Safety Report 5419582-6 (Version None)
Quarter: 2007Q3

REPORT INFORMATION
  Report Type: 
  Country: None (occurrence: None)
  Receive Date: 20070820
  Receipt Date: 20070807
  Transmission Date: 20080115
  Serious: Yes (Other)
  Sender: FDA-Public Use
  Company Number: BE-AMGEN-US239015

PATIENT
  Age: 24 Year
  Sex: Female

DRUGS (8)
  1. ENBREL [Suspect]
     Indication: RHEUMATOID ARTHRITIS
     Dosage: NOT PROVIDED
     Route: 058
     Dates: start: 20070201
  2. DAKAR [Suspect]
     Dosage: 15 MG
  3. CITALOPRAM [Suspect]
  4. ZANTAC 150 [Concomitant]
     Dosage: NOT PROVIDED
  5. DIHYDERGOT [Concomitant]
  6. BISOPROLOL [Concomitant]
  7. YASMIN [Concomitant]
  8. ELTHYRONE [Concomitant]

REACTIONS (1)
  - NEUROLOGICAL SYMPTOM [None]
